FAERS Safety Report 9634413 (Version 2)
Quarter: 2013Q4

REPORT INFORMATION
  Report Type: Spontaneous
  Country: CN (occurrence: CN)
  Receive Date: 20131021
  Receipt Date: 20131028
  Transmission Date: 20140711
  Serious: Yes (Other)
  Sender: FDA-Public Use
  Company Number: CN-JNJFOC-20131009753

PATIENT
  Age: 85 Year
  Sex: Female

DRUGS (4)
  1. XARELTO [Suspect]
     Indication: THROMBOSIS PROPHYLAXIS
     Route: 048
  2. XARELTO [Suspect]
     Indication: INTRAMEDULLARY ROD INSERTION
     Route: 048
  3. MEZLOCILLIN [Concomitant]
     Route: 065
  4. SULBACTAM [Concomitant]
     Route: 065

REACTIONS (1)
  - Hepatic necrosis [Recovered/Resolved]
